FAERS Safety Report 7660501-X (Version None)
Quarter: 2011Q3

REPORT INFORMATION
  Report Type: 
  Country: None (occurrence: None)
  Receive Date: 20110805
  Receipt Date: 20110517
  Transmission Date: 20111222
  Serious: No
  Sender: FDA-Public Use
  Company Number: US-BAYER-2011-024688

PATIENT
  Age: 35 Year
  Sex: Female

DRUGS (2)
  1. BEYAZ [Suspect]
     Indication: CONTRACEPTION
     Dosage: UNK
     Dates: start: 20101201, end: 20110301
  2. YASMIN [Suspect]

REACTIONS (6)
  - DYSPNOEA [None]
  - MALAISE [None]
  - CHEST PAIN [None]
  - NASOPHARYNGITIS [None]
  - ASTHMA [None]
  - FATIGUE [None]
